FAERS Safety Report 6534154-8 (Version None)
Quarter: 2009Q4

REPORT INFORMATION
  Report Type: 
  Country: None (occurrence: None)
  Receive Date: 20091214
  Receipt Date: 20081103
  Transmission Date: 20100525
  Serious: Yes (Other)
  Sender: FDA-Public Use
  Company Number: 382526

PATIENT
  Sex: Female

DRUGS (2)
  1. PEGASYS [Suspect]
     Indication: DRUG USE FOR UNKNOWN INDICATION
     Dosage: 180 UG 1 PER WEEK OTHER
     Route: 050
     Dates: start: 20050101
  2. COPEGUS [Suspect]
     Indication: DRUG USE FOR UNKNOWN INDICATION
     Dosage: 1 PER WEEK ORAL
     Route: 048
     Dates: start: 20050101

REACTIONS (4)
  - ANAEMIA [None]
  - BURNING SENSATION [None]
  - DYSGEUSIA [None]
  - PYREXIA [None]
